FAERS Safety Report 20193131 (Version 2)
Quarter: 2022Q1

REPORT INFORMATION
  Report Type: Spontaneous
  Country: FI (occurrence: None)
  Receive Date: 20211216
  Receipt Date: 20220118
  Transmission Date: 20220423
  Serious: Yes (Hospitalization, Other)
  Sender: FDA-Public Use
  Company Number: 2021A856577

PATIENT
  Age: 59 Year
  Sex: Female

DRUGS (20)
  1. QUETIAPINE FUMARATE [Suspect]
     Active Substance: QUETIAPINE FUMARATE
     Indication: Schizoaffective disorder
     Dosage: UNK
     Route: 065
     Dates: start: 202111
  2. OLANZAPINE [Suspect]
     Active Substance: OLANZAPINE
     Indication: Schizoaffective disorder
     Dosage: 30 MILLIGRAM, QD
     Route: 065
  3. OLANZAPINE [Suspect]
     Active Substance: OLANZAPINE
     Indication: Schizoaffective disorder
     Dosage: 1 + 1 TABLETS DAILY
     Route: 065
     Dates: start: 20211019, end: 20211026
  4. OLANZAPINE [Suspect]
     Active Substance: OLANZAPINE
     Indication: Schizoaffective disorder
     Dosage: 1 TABLET, EVERY EVENING DAILY
     Route: 065
     Dates: start: 20211027, end: 20211028
  5. OLANZAPINE [Suspect]
     Active Substance: OLANZAPINE
     Indication: Schizoaffective disorder
     Dosage: 1 + 2 TABLETS DAILY
     Route: 065
     Dates: start: 2010, end: 20211018
  6. ARIPIPRAZOLE [Suspect]
     Active Substance: ARIPIPRAZOLE
     Indication: Schizoaffective disorder
     Dosage: UNK
     Route: 065
     Dates: start: 202111
  7. CLOZAPINE [Suspect]
     Active Substance: CLOZAPINE
     Indication: Schizoaffective disorder
     Dosage: UNK
     Route: 048
     Dates: start: 1998, end: 1998
  8. CLOZAPINE [Suspect]
     Active Substance: CLOZAPINE
     Indication: Schizoaffective disorder
     Dosage: START DOSE 25 MG EVERY EVENING, TITRATED UP TO 200 MG
     Route: 048
     Dates: start: 20211018, end: 20211103
  9. CLOZAPINE [Suspect]
     Active Substance: CLOZAPINE
     Indication: Schizoaffective disorder
     Dosage: 200 MILLIGRAM, QD
     Route: 048
     Dates: start: 20211103, end: 20211112
  10. CLOZAPINE [Suspect]
     Active Substance: CLOZAPINE
     Indication: Schizoaffective disorder
     Dosage: UNK
     Route: 048
     Dates: start: 202110, end: 2021
  11. CLOZAPINE [Suspect]
     Active Substance: CLOZAPINE
     Indication: Schizoaffective disorder
     Dosage: 200 MILLIGRAM, QD
     Dates: start: 2021, end: 202111
  12. LITHIUM CARBONATE [Suspect]
     Active Substance: LITHIUM CARBONATE
     Indication: Schizoaffective disorder
     Dosage: 300 MILLIGRAM (300 MILLIGRAM 300 MG 1+1??)
     Route: 065
     Dates: start: 20211110
  13. LITHIUM CARBONATE [Suspect]
     Active Substance: LITHIUM CARBONATE
     Indication: Schizoaffective disorder
     Dosage: 1 + 2 DOSES, DALIY
     Route: 065
     Dates: start: 2011, end: 20211109
  14. LITHIUM CARBONATE [Suspect]
     Active Substance: LITHIUM CARBONATE
     Indication: Schizoaffective disorder
     Dosage: 1 + 1.5 DOSES
     Route: 065
     Dates: start: 20211110
  15. ZUCLOPENTHIXOL [Concomitant]
     Active Substance: ZUCLOPENTHIXOL
     Indication: Insomnia
     Dosage: UNK
     Route: 065
     Dates: start: 20211007, end: 20211026
  16. TENOX [Concomitant]
     Indication: Product used for unknown indication
     Dosage: 20 MILLIGRAM 20 MG, ??-1X1, AS NEEDED
     Route: 065
     Dates: start: 20210924
  17. TENOX [Concomitant]
     Indication: Product used for unknown indication
     Dosage: 0.5 - 1 DOSES, ONCE A DAY WHEN NEEDED
     Route: 065
     Dates: start: 20210924, end: 20210927
  18. TENOX [Concomitant]
     Indication: Product used for unknown indication
     Dosage: 0.5 - 2 DOSES, ONCE A DAY WHEN NEEDED
     Route: 065
     Dates: start: 20210928
  19. TENOX [Concomitant]
     Indication: Product used for unknown indication
     Dosage: 20 MILLIGRAM 20 MG, ??-1X1, AS NEEDED
     Route: 065
     Dates: start: 20210928
  20. METFORMIN HYDROCHLORIDE [Concomitant]
     Active Substance: METFORMIN HYDROCHLORIDE
     Indication: Product used for unknown indication
     Route: 065
     Dates: start: 2019

REACTIONS (6)
  - Insomnia [Not Recovered/Not Resolved]
  - White blood cell count increased [Unknown]
  - Eosinophilia [Unknown]
  - Delusion [Not Recovered/Not Resolved]
  - Off label use [Unknown]
  - Drug ineffective [Unknown]

NARRATIVE: CASE EVENT DATE: 19980101
